FAERS Safety Report 4522745-5 (Version None)
Quarter: 2004Q4

REPORT INFORMATION
  Report Type: 
  Country: None (occurrence: None)
  Receive Date: 20041101
  Receipt Date: 20040730
  Transmission Date: 20050328
  Serious: Yes (Other)
  Sender: FDA-Public Use
  Company Number: HQWYE734003AUG04

PATIENT
  Age: 52 Year
  Sex: Female

DRUGS (5)
  1. PREMARIN [Suspect]
     Indication: OESTROGEN REPLACEMENT THERAPY
     Dates: start: 19950401, end: 19971101
  2. PROVERA [Suspect]
     Indication: HORMONE REPLACEMENT THERAPY
     Dates: start: 19950401, end: 19971101
  3. DEPO-PROVERA SUSPENSION/INJ [Concomitant]
  4. MEDROXYPROGESTERONE ACETATE [Concomitant]
  5. PREMPRO [Concomitant]

REACTIONS (1)
  - BREAST CANCER [None]
